FAERS Safety Report 10035811 (Version 2)
Quarter: 2014Q2

REPORT INFORMATION
  Report Type: Spontaneous
  Country: IT (occurrence: IT)
  Receive Date: 20140325
  Receipt Date: 20140603
  Transmission Date: 20141212
  Serious: Yes (Other)
  Sender: FDA-Public Use
  Company Number: IT-ELI_LILLY_AND_COMPANY-IT201403004336

PATIENT
  Age: 87 Year
  Sex: Female

DRUGS (11)
  1. HUMALOG LISPRO [Suspect]
     Indication: DIABETES MELLITUS
     Dosage: 20 IU, QD
     Route: 058
     Dates: start: 20130510
  2. LANTUS [Suspect]
     Indication: DIABETES MELLITUS
     Dosage: 10 IU, QD
     Route: 058
     Dates: start: 20130510
  3. LANSOPRAZOLE [Concomitant]
     Dosage: 1 DF, UNK
     Route: 048
  4. RAMIPRIL [Concomitant]
     Dosage: 5 DF, UNK
     Route: 048
  5. FUROSEMIDE [Concomitant]
     Dosage: 12.5 MG, UNK
     Route: 048
  6. SIMVASTATIN [Concomitant]
     Dosage: 1 DF, UNK
     Route: 048
  7. LUVION [Concomitant]
     Dosage: 50 MG, UNK
     Route: 048
  8. DILTIAZEM [Concomitant]
     Dosage: 90 MG, UNK
     Route: 048
  9. CARDIOASPIRIN [Concomitant]
     Dosage: 100 MG, UNK
     Route: 048
  10. SERETIDE DISKUS [Concomitant]
     Route: 055
  11. SPIRIVA [Concomitant]
     Dosage: 18 UG, UNK

REACTIONS (2)
  - Hypoglycaemia [Recovering/Resolving]
  - Sopor [Recovering/Resolving]
